FAERS Safety Report 6763133-0 (Version None)
Quarter: 2010Q2

REPORT INFORMATION
  Report Type: 
  Country: None (occurrence: None)
  Receive Date: 20100608
  Receipt Date: 20100608
  Transmission Date: 20101027
  Serious: No
  Sender: FDA-Public Use
  Company Number: None

PATIENT
  Age: 67 Year
  Sex: Male
  Weight: 100.6985 kg

DRUGS (2)
  1. METAMUCIL-2 [Suspect]
     Indication: BLOOD CHOLESTEROL INCREASED
     Dosage: 3 TSP 3X DAILY PO
     Route: 048
     Dates: start: 20100203, end: 20100603
  2. METAMUCIL-2 [Suspect]
     Indication: DYSPEPSIA
     Dosage: 3 TSP 3X DAILY PO
     Route: 048
     Dates: start: 20100203, end: 20100603

REACTIONS (1)
  - NO ADVERSE EVENT [None]
